FAERS Safety Report 10748744 (Version 2)
Quarter: 2015Q1

REPORT INFORMATION
  Report Type: Spontaneous
  Country: PL (occurrence: PL)
  Receive Date: 20150129
  Receipt Date: 20150129
  Transmission Date: 20150721
  Serious: Yes (Other)
  Sender: FDA-Public Use
  Company Number: PL-WATSON-2015-00717

PATIENT
  Sex: Female

DRUGS (3)
  1. SODIUM VALPROATE (UNKNOWN) [Interacting]
     Active Substance: VALPROATE SODIUM
     Indication: TRIGEMINAL NEURALGIA
     Dosage: 900 MG, DAILY
     Route: 065
  2. LEVOTHYROXINE (UNKNOWN) [Suspect]
     Active Substance: LEVOTHYROXINE
     Indication: THYROID HORMONE REPLACEMENT THERAPY
     Dosage: 150 ?G, DAILY
     Route: 065
  3. CARBAMAZEPINE (UNKNOWN) [Suspect]
     Active Substance: CARBAMAZEPINE
     Indication: TRIGEMINAL NEURALGIA
     Dosage: 200 MG, TID
     Route: 065

REACTIONS (3)
  - Hyperthyroidism [Recovered/Resolved]
  - Drug interaction [Recovered/Resolved]
  - Hypothyroidism [Recovered/Resolved]
